FAERS Safety Report 16188117 (Version 4)
Quarter: 2022Q1

REPORT INFORMATION
  Report Type: Spontaneous
  Country: GB (occurrence: GB)
  Receive Date: 20190412
  Receipt Date: 20220319
  Transmission Date: 20220424
  Serious: Yes (Hospitalization, Other)
  Sender: FDA-Public Use
  Company Number: GB-AUROBINDO-AUR-APL-2019-019037

PATIENT
  Age: 59 Year
  Sex: Male

DRUGS (10)
  1. DONEPEZIL [Suspect]
     Active Substance: DONEPEZIL
     Indication: Product used for unknown indication
     Dosage: UNK
     Route: 065
  2. LAMOTRIGINE [Suspect]
     Active Substance: LAMOTRIGINE
     Indication: Product used for unknown indication
     Dosage: UNK
     Route: 065
     Dates: start: 2017
  3. ASENAPINE [Suspect]
     Active Substance: ASENAPINE
     Indication: Product used for unknown indication
     Dosage: UNK
     Route: 065
  4. ASENAPINE [Suspect]
     Active Substance: ASENAPINE
     Dosage: 20 MILLIGRAM
     Route: 065
     Dates: start: 2013
  5. DEPAKOTE [Suspect]
     Active Substance: DIVALPROEX SODIUM
     Indication: Product used for unknown indication
     Dosage: 2500 MILLIGRAM
     Route: 065
  6. DEPAKOTE [Suspect]
     Active Substance: DIVALPROEX SODIUM
     Dosage: 2000 MG
     Route: 065
     Dates: start: 201211
  7. DEPAKOTE [Suspect]
     Active Substance: DIVALPROEX SODIUM
     Dosage: 220 MILLIGRAM, ONCE A DAY
     Route: 065
     Dates: start: 201211
  8. HALDOL [Suspect]
     Active Substance: HALOPERIDOL
     Indication: Product used for unknown indication
     Dosage: 500 MILLIGRAM, EVERY 17 DAYS
     Route: 065
  9. ASPIRIN [Concomitant]
     Active Substance: ASPIRIN
     Indication: Product used for unknown indication
     Dosage: ONCE A DAY
     Route: 065
     Dates: start: 2013
  10. PHENOTHIAZINE [Concomitant]
     Active Substance: PHENOTHIAZINE
     Indication: Product used for unknown indication
     Dosage: UNK
     Route: 065

REACTIONS (25)
  - Vascular dementia [Unknown]
  - Dementia Alzheimer^s type [Unknown]
  - Deafness [Unknown]
  - Cellulitis [Recovered/Resolved]
  - Cerebral atrophy [Unknown]
  - Thermal burns of eye [Recovering/Resolving]
  - Hypotension [Unknown]
  - Drug resistance [Unknown]
  - Oedema [Unknown]
  - Swelling face [Unknown]
  - Weight decreased [Unknown]
  - Labelled drug-drug interaction issue [Unknown]
  - Drug interaction [Unknown]
  - Eyelid oedema [Recovering/Resolving]
  - Disease recurrence [Unknown]
  - Decreased appetite [Unknown]
  - Conjunctivitis [Unknown]
  - Depressed mood [Unknown]
  - Tinnitus [Unknown]
  - Sedation [Unknown]
  - Depression [Unknown]
  - Somnolence [Unknown]
  - Selective eating disorder [Unknown]
  - Drug effective for unapproved indication [Unknown]
  - Product use in unapproved indication [Unknown]

NARRATIVE: CASE EVENT DATE: 20130101
